FAERS Safety Report 5299078-5 (Version None)
Quarter: 2007Q2

REPORT INFORMATION
  Report Type: 
  Country: None (occurrence: None)
  Receive Date: 20070417
  Receipt Date: 20070411
  Transmission Date: 20071010
  Serious: Yes (Hospitalization)
  Sender: FDA-Public Use
  Company Number: US-GLAXOSMITHKLINE-A0646693A

PATIENT
  Age: 49 Year
  Sex: Male
  Weight: 79.5 kg

DRUGS (2)
  1. PAZOPANIB [Suspect]
     Indication: MALIGNANT GLIOMA
     Dosage: 400MG PER DAY
     Route: 048
     Dates: start: 20070315
  2. LAPATINIB [Suspect]
     Indication: MALIGNANT GLIOMA
     Dosage: 1000MG PER DAY
     Route: 048
     Dates: start: 20070315

REACTIONS (2)
  - CONVULSION [None]
  - HAEMORRHAGE INTRACRANIAL [None]
